FAERS Safety Report 17737313 (Version 2)
Quarter: 2022Q4

REPORT INFORMATION
  Report Type: Spontaneous
  Country: CA (occurrence: CA)
  Receive Date: 20200503
  Receipt Date: 20221104
  Transmission Date: 20230112
  Serious: Yes (Hospitalization)
  Sender: FDA-Public Use
  Company Number: CA-PFIZER INC-2020173222

PATIENT
  Age: 79 Year
  Sex: Male
  Weight: 65 kg

DRUGS (16)
  1. AZITHROMYCIN [Suspect]
     Active Substance: AZITHROMYCIN
     Indication: Cough
     Dosage: 500 MG, 1X/DAY
     Route: 048
  2. CEFAZOLIN [Suspect]
     Active Substance: CEFAZOLIN
     Indication: Peritonitis
     Dosage: 1500 MG, 1X/DAY
     Route: 033
  3. AMLODIPINE [Concomitant]
     Active Substance: AMLODIPINE BESYLATE
     Dosage: UNK
  4. ASPIRIN [Concomitant]
     Active Substance: ASPIRIN
     Dosage: UNK
  5. BISOPROLOL [Concomitant]
     Active Substance: BISOPROLOL
     Dosage: UNK
  6. DOCUSATE SODIUM [Concomitant]
     Active Substance: DOCUSATE SODIUM
     Dosage: UNK
  7. EPREX [Concomitant]
     Active Substance: ERYTHROPOIETIN
     Dosage: UNK
  8. FLUTICASONE [Concomitant]
     Active Substance: FLUTICASONE
     Dosage: UNK
  9. KAYEXALATE [Concomitant]
     Active Substance: SODIUM POLYSTYRENE SULFONATE
     Dosage: UNK
  10. MEGESTROL [Concomitant]
     Active Substance: MEGESTROL
     Dosage: UNK
  11. NEPAFENAC [Concomitant]
     Active Substance: NEPAFENAC
     Dosage: UNK
  12. ALFACALCIDOL [Concomitant]
     Active Substance: ALFACALCIDOL
     Dosage: UNK
  13. PANTOPRAZOLE [Concomitant]
     Active Substance: PANTOPRAZOLE
     Dosage: UNK
  14. ALBUTEROL [Concomitant]
     Active Substance: ALBUTEROL
     Dosage: UNK
  15. SEVELAMER [Concomitant]
     Active Substance: SEVELAMER
     Dosage: UNK
  16. ERGOCALCIFEROL [Concomitant]
     Active Substance: ERGOCALCIFEROL
     Dosage: UNK

REACTIONS (7)
  - Arthralgia [Recovering/Resolving]
  - Blister [Recovering/Resolving]
  - Laryngeal discomfort [Recovering/Resolving]
  - Lip swelling [Recovering/Resolving]
  - Oral disorder [Recovering/Resolving]
  - Pruritus [Recovering/Resolving]
  - Product dose omission issue [Recovering/Resolving]
